FAERS Safety Report 22248709 (Version 2)
Quarter: 2024Q2

REPORT INFORMATION
  Report Type: Spontaneous
  Country: US (occurrence: US)
  Receive Date: 20230425
  Receipt Date: 20240429
  Transmission Date: 20240715
  Serious: Yes (Other)
  Sender: FDA-Public Use
  Company Number: US-SUN PHARMACEUTICAL INDUSTRIES LTD-2023R1-385343

PATIENT
  Age: 54 Year
  Sex: Female

DRUGS (26)
  1. DOXEPIN [Suspect]
     Active Substance: DOXEPIN
     Indication: Granuloma skin
     Dosage: 10 MILLIGRAM PER MILLILITRE, DAILY
     Route: 065
     Dates: start: 20210414, end: 20210813
  2. GABAPENTIN [Suspect]
     Active Substance: GABAPENTIN
     Indication: Granuloma skin
     Dosage: 300 MILLIGRAM, DAILY
     Route: 065
     Dates: start: 20220331, end: 20221021
  3. HYDROXYCHLOROQUINE [Suspect]
     Active Substance: HYDROXYCHLOROQUINE
     Indication: Granuloma skin
     Dosage: 400 MILLIGRAM, DAILY
     Route: 065
     Dates: start: 20201102, end: 20220602
  4. HYDROXYCHLOROQUINE [Suspect]
     Active Substance: HYDROXYCHLOROQUINE
     Dosage: 200 MILLIGRAM, DAILY
     Route: 065
     Dates: start: 20220602, end: 20221021
  5. KENALOG [Suspect]
     Active Substance: TRIAMCINOLONE ACETONIDE
     Indication: Granuloma skin
     Dosage: 40 MILLIGRAM PER MILLILITRE EVERY 6-12 WK
     Route: 065
     Dates: start: 20181205, end: 20210414
  6. LORATADINE [Suspect]
     Active Substance: LORATADINE
     Indication: Granuloma skin
     Dosage: 10 MILLIGRAM, DAILY
     Route: 065
     Dates: start: 20180518
  7. METHOTREXATE [Suspect]
     Active Substance: METHOTREXATE
     Indication: Granuloma skin
     Dosage: 15 MILLIGRAM, WEEKLY
     Route: 048
     Dates: start: 20171213, end: 20180426
  8. METHOTREXATE [Suspect]
     Active Substance: METHOTREXATE
     Dosage: 25 MILLIGRAM, WEEKLY
     Route: 048
     Dates: start: 20180518, end: 20190415
  9. METHOTREXATE [Suspect]
     Active Substance: METHOTREXATE
     Dosage: 15 MILLIGRAM, WEEKLY
     Route: 048
     Dates: start: 20190415, end: 20190523
  10. METHOTREXATE [Suspect]
     Active Substance: METHOTREXATE
     Dosage: 25 MILLIGRAM, WEEKLY
     Route: 048
     Dates: start: 20190523
  11. MINOCYCLINE [Suspect]
     Active Substance: MINOCYCLINE HYDROCHLORIDE
     Indication: Granuloma skin
     Dosage: 100 MILLIGRAM, BID
     Route: 065
     Dates: start: 20180905, end: 20181017
  12. CLOBETASOL [Suspect]
     Active Substance: CLOBETASOL
     Indication: Granuloma skin
     Dosage: 0.05 PERCENT, DAILY
     Route: 065
     Dates: start: 20180518, end: 20181205
  13. MUPIROCIN [Suspect]
     Active Substance: MUPIROCIN
     Indication: Granuloma skin
     Dosage: 2 PERCENT, BID
     Route: 065
     Dates: start: 20191102, end: 20200217
  14. MUPIROCIN [Suspect]
     Active Substance: MUPIROCIN
     Dosage: 2 PERCENT, BID
     Route: 065
     Dates: start: 20200612, end: 20210121
  15. TACROLIMUS [Suspect]
     Active Substance: TACROLIMUS
     Indication: Granuloma skin
     Dosage: 0.1 PERCENT, BID
     Route: 065
     Dates: start: 20210108, end: 20210820
  16. TACROLIMUS [Suspect]
     Active Substance: TACROLIMUS
     Dosage: 0.1 PERCENT, BID
     Route: 065
     Dates: start: 20220321, end: 20220504
  17. CLOBETASOL [Suspect]
     Active Substance: CLOBETASOL
     Indication: Granuloma skin
     Dosage: 0.05 PERCENT 2-3 TIMES WEEKLY
     Route: 065
     Dates: start: 20181205
  18. DAPSONE [Suspect]
     Active Substance: DAPSONE
     Indication: Granuloma skin
     Dosage: 25 MILLIGRAM, DAILY
     Route: 048
     Dates: start: 20181010, end: 20181205
  19. DAPSONE [Suspect]
     Active Substance: DAPSONE
     Dosage: 100 MILLIGRAM, DAILY
     Route: 048
     Dates: start: 20181205, end: 20191122
  20. DAPSONE [Suspect]
     Active Substance: DAPSONE
     Dosage: 150 MILLIGRAM, DAILY
     Route: 048
     Dates: start: 20191122, end: 20200918
  21. DAPSONE [Suspect]
     Active Substance: DAPSONE
     Dosage: 100 MILLIGRAM, DAILY
     Route: 048
     Dates: start: 20200918, end: 20201120
  22. DAPSONE [Suspect]
     Active Substance: DAPSONE
     Dosage: 50 MILLIGRAM, DAILY
     Route: 048
     Dates: start: 20201120, end: 20210716
  23. DAPSONE [Suspect]
     Active Substance: DAPSONE
     Dosage: 100 MILLIGRAM, DAILY
     Route: 048
     Dates: start: 20210716, end: 20220331
  24. DAPSONE [Suspect]
     Active Substance: DAPSONE
     Dosage: 150 MILLIGRAM, DAILY
     Route: 048
     Dates: start: 20210331, end: 20220602
  25. HYDROXYZINE [Suspect]
     Active Substance: HYDROXYZINE HYDROCHLORIDE
     Indication: Granuloma skin
     Dosage: 25-50 MG, DAILY
     Route: 065
     Dates: start: 20180518, end: 20180822
  26. HYDROXYZINE [Suspect]
     Active Substance: HYDROXYZINE HYDROCHLORIDE
     Dosage: 10 MILLIGRAM, DAILY
     Route: 065
     Dates: start: 20200612, end: 20200929

REACTIONS (1)
  - Drug ineffective [Unknown]
